FAERS Safety Report 15531696 (Version 1)
Quarter: 2018Q4

REPORT INFORMATION
  Report Type: Spontaneous
  Country: US (occurrence: US)
  Receive Date: 20181019
  Receipt Date: 20181019
  Transmission Date: 20190205
  Serious: No
  Sender: FDA-Public Use
  Company Number: US-PFIZER INC-2018416569

PATIENT
  Age: 63 Year
  Sex: Female
  Weight: 75.74 kg

DRUGS (1)
  1. CHANTIX [Suspect]
     Active Substance: VARENICLINE TARTRATE
     Indication: EX-TOBACCO USER
     Dosage: 1 DF [ONLY TOOK 1 TABLET YEARS AGO]
     Dates: start: 2017

REACTIONS (2)
  - Expired product administered [Unknown]
  - Abdominal pain upper [Unknown]
